FAERS Safety Report 15484181 (Version 2)
Quarter: 2018Q4

REPORT INFORMATION
  Report Type: Spontaneous
  Country: US (occurrence: US)
  Receive Date: 20181010
  Receipt Date: 20181016
  Transmission Date: 20190205
  Serious: No
  Sender: FDA-Public Use
  Company Number: US-OTSUKA-2018_033076

PATIENT

DRUGS (5)
  1. CLADRIBINE. [Suspect]
     Active Substance: CLADRIBINE
     Dosage: 5 MG/M2, OVER 1?2 H ON DAYS 1?5
     Route: 042
  2. CYTARABINE. [Suspect]
     Active Substance: CYTARABINE
     Indication: ACUTE MYELOID LEUKAEMIA
     Dosage: LOW DOSE  TWO 28?DAY CYCLES FOR UP TO 18 CYCLES
     Route: 058
  3. CYTARABINE. [Suspect]
     Active Substance: CYTARABINE
     Dosage: 20 MG, BID ON DAYS1-10
     Route: 058
  4. CLADRIBINE. [Suspect]
     Active Substance: CLADRIBINE
     Indication: ACUTE MYELOID LEUKAEMIA
     Dosage: TWO 28?DAY CYCLES FOR UP TO 18 CYCLES
     Route: 042
  5. DACOGEN [Suspect]
     Active Substance: DECITABINE
     Indication: ACUTE MYELOID LEUKAEMIA
     Dosage: TWO 28?DAY CYCLES FOR UP TO 18 CYCLES
     Route: 042

REACTIONS (2)
  - Alanine aminotransferase increased [Unknown]
  - Aspartate aminotransferase increased [Unknown]
